FAERS Safety Report 24996599 (Version 6)
Quarter: 2025Q2

REPORT INFORMATION
  Report Type: Spontaneous
  Country: CO (occurrence: CO)
  Receive Date: 20250221
  Receipt Date: 20250501
  Transmission Date: 20250717
  Serious: No
  Sender: PFIZER
  Company Number: CO-PFIZER INC-202500034630

PATIENT
  Age: 13 Year
  Sex: Female
  Weight: 30 kg

DRUGS (1)
  1. GENOTROPIN [Suspect]
     Active Substance: SOMATROPIN
     Indication: Growth hormone deficiency
     Dosage: 1.0 MG, DAILY
     Route: 058
     Dates: start: 202403, end: 202501

REACTIONS (7)
  - Device mechanical issue [Recovered/Resolved]
  - Device issue [Recovered/Resolved]
  - Device physical property issue [Recovered/Resolved]
  - Intentional product misuse [Recovered/Resolved]
  - Product preparation issue [Recovered/Resolved]
  - Drug administered in wrong device [Recovered/Resolved]
  - Drug dose omission by device [Recovered/Resolved]

NARRATIVE: CASE EVENT DATE: 20250101
